FAERS Safety Report 7764340-0 (Version None)
Quarter: 2011Q3

REPORT INFORMATION
  Report Type: 
  Country: None (occurrence: None)
  Receive Date: 20110921
  Receipt Date: 20110916
  Transmission Date: 20111222
  Serious: Yes (Hospitalization, Other)
  Sender: FDA-Public Use
  Company Number: US-BRISTOL-MYERS SQUIBB COMPANY-15967763

PATIENT
  Age: 53 Year
  Sex: Male
  Weight: 121 kg

DRUGS (3)
  1. IPILIMUMAB [Suspect]
     Indication: MALIGNANT MELANOMA
     Dosage: LAST DOSE:28JUL2011 DOSAGE:TOTAL DOSE LAST COURSE: 1246 MG
     Route: 042
     Dates: start: 20110526
  2. LEUKINE [Suspect]
     Indication: MALIGNANT MELANOMA
     Dosage: LAST DOSE:03AUG2011 DOSAGE:250MCG/DAY IV OVER 90MIN ON DAY 1-14
     Route: 058
     Dates: start: 20110526, end: 20110803
  3. SYNTHROID [Concomitant]

REACTIONS (8)
  - DERMATITIS ACNEIFORM [None]
  - HYPOPITUITARISM [None]
  - HYPONATRAEMIA [None]
  - ADRENAL INSUFFICIENCY [None]
  - DECREASED APPETITE [None]
  - FATIGUE [None]
  - NAUSEA [None]
  - VOMITING [None]
